FAERS Safety Report 13553399 (Version 1)
Quarter: 2017Q2

REPORT INFORMATION
  Report Type: Spontaneous
  Country: US (occurrence: US)
  Receive Date: 20170516
  Receipt Date: 20170516
  Transmission Date: 20170830
  Serious: No
  Sender: FDA-Public Use
  Company Number: None

PATIENT
  Age: 63 Year
  Sex: Male
  Weight: 66.15 kg

DRUGS (6)
  1. SODIUM BICARB [Concomitant]
     Active Substance: SODIUM BICARBONATE
  2. VIT. B-12 [Concomitant]
  3. VITAMIN D2 [Concomitant]
     Active Substance: ERGOCALCIFEROL
  4. ZINC. [Concomitant]
     Active Substance: ZINC
  5. LISINOPRIL. [Concomitant]
     Active Substance: LISINOPRIL
  6. ALENDRONATE SODIUM TABLETS [Suspect]
     Active Substance: ALENDRONATE SODIUM
     Indication: OSTEOPOROSIS
     Dosage: ?          QUANTITY:8 TABLET(S);OTHER FREQUENCY:ONCE A WEEK;?
     Route: 048
     Dates: start: 20170330, end: 20170413

REACTIONS (2)
  - Product quality issue [None]
  - Ill-defined disorder [None]

NARRATIVE: CASE EVENT DATE: 20170513
